FAERS Safety Report 17315095 (Version 1)
Quarter: 2020Q1

REPORT INFORMATION
  Report Type: Report from Study
  Country: CN (occurrence: CN)
  Receive Date: 20200124
  Receipt Date: 20200124
  Transmission Date: 20200409
  Serious: Yes (Other)
  Sender: FDA-Public Use
  Company Number: CN-UCBSA-2020002634

PATIENT

DRUGS (2)
  1. LEVETIRACETAM. [Suspect]
     Active Substance: LEVETIRACETAM
     Indication: OFF LABEL USE
     Dosage: 1000 MILLIGRAM/DAY, ADMINISTERED IN 2 TIMES
  2. LEVETIRACETAM. [Suspect]
     Active Substance: LEVETIRACETAM
     Indication: PARTIAL SEIZURES
     Dosage: 500 MILLIGRAM/DAY, ADMINISTERED IN 2 TIMES

REACTIONS (7)
  - Decreased appetite [Unknown]
  - Drug ineffective for unapproved indication [Unknown]
  - Liver disorder [Unknown]
  - Lethargy [Unknown]
  - Off label use [Unknown]
  - Respiratory depression [Unknown]
  - Fatigue [Unknown]
